FAERS Safety Report 16457540 (Version 1)
Quarter: 2019Q2

REPORT INFORMATION
  Report Type: Spontaneous
  Country: AU (occurrence: AU)
  Receive Date: 20190620
  Receipt Date: 20190620
  Transmission Date: 20190711
  Serious: Yes (Other)
  Sender: FDA-Public Use
  Company Number: PHHY2019AU137906

PATIENT
  Age: 32 Year
  Sex: Female

DRUGS (5)
  1. PREDNISOLONE. [Suspect]
     Active Substance: PREDNISOLONE
     Indication: HYPERCALCAEMIA
     Dosage: 10-25 MG/D
     Route: 048
  2. CALCITONIN, SALMON [Suspect]
     Active Substance: CALCITONIN SALMON
     Indication: HYPERCALCAEMIA
     Dosage: 100 IU, BID
     Route: 058
  3. LABETALOL [Suspect]
     Active Substance: LABETALOL\LABETALOL HYDROCHLORIDE
     Indication: HYPERTENSION
     Route: 065
  4. CALCITONIN, SALMON [Suspect]
     Active Substance: CALCITONIN SALMON
     Dosage: 200 IU, TID
     Route: 065
  5. POTASSIUM CITRATE. [Suspect]
     Active Substance: POTASSIUM CITRATE
     Indication: HYPERCALCAEMIA
     Route: 065

REACTIONS (4)
  - Hypertension [Recovering/Resolving]
  - Maternal exposure during pregnancy [Unknown]
  - Renal impairment [Recovering/Resolving]
  - Hypercalcaemia [Recovering/Resolving]
